FAERS Safety Report 7399227 (Version 4)
Quarter: 2013Q1

REPORT INFORMATION
  Report Type: Spontaneous
  Country: US (occurrence: US)
  Receive Date: 20100526
  Receipt Date: 20130301
  Transmission Date: 20140127
  Serious: No
  Sender: FDA-Public Use
  Company Number: US-BIOGENIDEC-2010BI016575

PATIENT
  Age: 42 None
  Sex: Female

DRUGS (3)
  1. TYSABRI [Suspect]
     Indication: MULTIPLE SCLEROSIS
     Route: 042
     Dates: start: 20081119
  2. COPAXONE [Concomitant]
     Indication: MULTIPLE SCLEROSIS
  3. FLU SHOT [Concomitant]
     Indication: INFLUENZA IMMUNISATION

REACTIONS (31)
  - Amnesia [Not Recovered/Not Resolved]
  - Tooth extraction [Recovered/Resolved]
  - Tremor [Recovered/Resolved]
  - Hypoaesthesia [Not Recovered/Not Resolved]
  - Paraesthesia [Recovered/Resolved]
  - Neck pain [Not Recovered/Not Resolved]
  - Neuritis [Unknown]
  - Myalgia [Recovered/Resolved]
  - Nuclear magnetic resonance imaging abnormal [Unknown]
  - Tooth fracture [Recovered/Resolved]
  - Mobility decreased [Recovered/Resolved]
  - Aphasia [Recovered/Resolved]
  - White blood cell count increased [Not Recovered/Not Resolved]
  - Neuralgia [Not Recovered/Not Resolved]
  - Gingival infection [Recovered/Resolved]
  - Gingival pain [Recovered/Resolved]
  - Glucose tolerance impaired [Not Recovered/Not Resolved]
  - Weight decreased [Recovered/Resolved]
  - Weight increased [Recovered/Resolved]
  - Central nervous system lesion [Unknown]
  - Chills [Recovered/Resolved]
  - Headache [Not Recovered/Not Resolved]
  - Malaise [Not Recovered/Not Resolved]
  - Tooth infection [Recovered/Resolved]
  - Oropharyngeal pain [Not Recovered/Not Resolved]
  - Pharyngitis streptococcal [Not Recovered/Not Resolved]
  - Atypical pneumonia [Not Recovered/Not Resolved]
  - Flushing [Not Recovered/Not Resolved]
  - Pyrexia [Not Recovered/Not Resolved]
  - Procedural complication [Recovered/Resolved]
  - Device failure [Recovered/Resolved]
